FAERS Safety Report 24662843 (Version 1)
Quarter: 2024Q4

REPORT INFORMATION
  Report Type: Spontaneous
  Country: CH (occurrence: CH)
  Receive Date: 20241126
  Receipt Date: 20241126
  Transmission Date: 20250115
  Serious: Yes (Hospitalization)
  Sender: CHEPLAPHARM
  Company Number: None

PATIENT
  Age: 36 Year
  Sex: Male

DRUGS (10)
  1. MIDAZOLAM [Interacting]
     Active Substance: MIDAZOLAM
     Dosage: VOLUNTARY AND EXCESSIVE INTAKE WITHOUT PRECISE DOSES
     Dates: start: 20241025, end: 20241025
  2. MIDAZOLAM [Interacting]
     Active Substance: MIDAZOLAM
  3. CLONAZEPAM [Interacting]
     Active Substance: CLONAZEPAM
     Dosage: VOLUNTARY AND EXCESSIVE INTAKE WITHOUT PRECISE DOSES
     Dates: start: 20241025, end: 20241025
  4. CLONAZEPAM [Interacting]
     Active Substance: CLONAZEPAM
  5. CLORAZEPATE DIPOTASSIUM [Interacting]
     Active Substance: CLORAZEPATE DIPOTASSIUM
     Dosage: VOLUNTARY AND EXCESSIVE INTAKE WITHOUT PRECISE DOSES
     Dates: start: 20241025, end: 20241025
  6. XANAX [Concomitant]
     Active Substance: ALPRAZOLAM
  7. QUETIAPINE [Concomitant]
     Active Substance: QUETIAPINE
  8. MORPHINE SULFATE [Concomitant]
     Active Substance: MORPHINE SULFATE
  9. WELLBUTRIN [Concomitant]
     Active Substance: BUPROPION HYDROCHLORIDE
  10. FLUOXETINE HYDROCHLORIDE [Concomitant]
     Active Substance: FLUOXETINE HYDROCHLORIDE

REACTIONS (8)
  - Depressed level of consciousness [Recovered/Resolved]
  - Hypothermia [Recovered/Resolved]
  - Bradypnoea [Recovered/Resolved]
  - Bradycardia [Recovered/Resolved]
  - Respiratory acidosis [Recovered/Resolved]
  - Intentional overdose [Recovered/Resolved]
  - Drug interaction [Unknown]
  - Toxicity to various agents [Unknown]

NARRATIVE: CASE EVENT DATE: 20241025
